FAERS Safety Report 7989542-X (Version None)
Quarter: 2011Q4

REPORT INFORMATION
  Report Type: 
  Country: None (occurrence: None)
  Receive Date: 20111219
  Receipt Date: 20110826
  Transmission Date: 20120403
  Serious: No
  Sender: FDA-Public Use
  Company Number: US-ASTRAZENECA-2011SE51469

PATIENT
  Sex: Male

DRUGS (3)
  1. LIVALO [Suspect]
     Route: 065
  2. CRESTOR [Suspect]
     Indication: HYPERCHOLESTEROLAEMIA
     Route: 048
  3. CRESTOR [Suspect]
     Route: 048

REACTIONS (5)
  - BLOOD CHOLESTEROL INCREASED [None]
  - LIMB DISCOMFORT [None]
  - ADVERSE EVENT [None]
  - HEADACHE [None]
  - DIABETES MELLITUS [None]
